FAERS Safety Report 15143457 (Version 2)
Quarter: 2018Q3

REPORT INFORMATION
  Report Type: Report from Study
  Country: US (occurrence: US)
  Receive Date: 20180713
  Receipt Date: 20180814
  Transmission Date: 20181010
  Serious: Yes (Death, Other)
  Sender: FDA-Public Use
  Company Number: US-ADAMAS PHARMA, LLC-2018ADA01253

PATIENT
  Sex: Female

DRUGS (12)
  1. CARB/LEVO [Concomitant]
     Active Substance: CARBIDOPA\LEVODOPA
  2. CHOLESTYRAM [Concomitant]
     Active Substance: CHOLESTYRAMINE
  3. IBUPROFEN. [Concomitant]
     Active Substance: IBUPROFEN
  4. PANTOPRAZOLE [Concomitant]
     Active Substance: PANTOPRAZOLE
  5. DIPHEN/ATROP [Concomitant]
     Active Substance: ATROPINE SULFATE\DIPHENOXYLATE
  6. GOCOVRI [Suspect]
     Active Substance: AMANTADINE
     Dosage: 274 MG, 1X/DAY AT BEDTIME
     Route: 048
     Dates: start: 20180613, end: 201806
  7. DONEPEZIL. [Concomitant]
     Active Substance: DONEPEZIL
  8. GOCOVRI [Suspect]
     Active Substance: AMANTADINE
     Indication: DYSKINESIA
     Dosage: 137 MG, 1X/DAY AT BEDTIME
     Route: 048
     Dates: start: 20180606, end: 20180612
  9. DULOXETINE. [Concomitant]
     Active Substance: DULOXETINE
  10. VITAMIN E [Concomitant]
     Active Substance: .ALPHA.-TOCOPHEROL
  11. OXYCODONE [Concomitant]
     Active Substance: OXYCODONE
  12. RAPAFLO [Concomitant]
     Active Substance: SILODOSIN

REACTIONS (9)
  - Respiratory failure [Fatal]
  - Dysphagia [Not Recovered/Not Resolved]
  - Unevaluable event [Not Recovered/Not Resolved]
  - Tardive dyskinesia [None]
  - Staphylococcal bacteraemia [Unknown]
  - Cystitis klebsiella [Not Recovered/Not Resolved]
  - Hallucinations, mixed [Not Recovered/Not Resolved]
  - Pneumonia aspiration [Unknown]
  - Sepsis syndrome [Fatal]

NARRATIVE: CASE EVENT DATE: 2018
